FAERS Safety Report 16132020 (Version 7)
Quarter: 2020Q2

REPORT INFORMATION
  Report Type: Report from Study
  Country: US (occurrence: US)
  Receive Date: 20190329
  Receipt Date: 20200409
  Transmission Date: 20200713
  Serious: Yes (Hospitalization, Other)
  Sender: FDA-Public Use
  Company Number: US-ROCHE-2286231

PATIENT
  Age: 47 Year
  Sex: Female
  Weight: 70.82 kg

DRUGS (12)
  1. OCREVUS [Suspect]
     Active Substance: OCRELIZUMAB
     Indication: RELAPSING-REMITTING MULTIPLE SCLEROSIS
     Dosage: HALF DOSE ;ONGOING: NO
     Route: 042
     Dates: start: 20180409
  2. BENADRYL [Concomitant]
     Active Substance: DIPHENHYDRAMINE HYDROCHLORIDE
     Indication: PREMEDICATION
  3. OCREVUS [Suspect]
     Active Substance: OCRELIZUMAB
     Route: 042
     Dates: start: 20180319, end: 20180406
  4. OCREVUS [Suspect]
     Active Substance: OCRELIZUMAB
     Route: 042
     Dates: start: 20200317
  5. DYAZIDE [Concomitant]
     Active Substance: HYDROCHLOROTHIAZIDE\TRIAMTERENE
     Dosage: ONGOING: YES
     Route: 065
  6. OCREVUS [Suspect]
     Active Substance: OCRELIZUMAB
     Dosage: FULL DOSE ;ONGOING: YES
     Route: 042
     Dates: start: 20180911
  7. OCREVUS [Suspect]
     Active Substance: OCRELIZUMAB
     Dosage: 20/MAR/2018 AND 5/SEP/2018
     Route: 042
     Dates: start: 20180305
  8. OCREVUS [Suspect]
     Active Substance: OCRELIZUMAB
     Route: 042
     Dates: start: 20200319
  9. LASIX [Concomitant]
     Active Substance: FUROSEMIDE
     Dosage: ONGOING-YES
     Route: 065
  10. PREMARIN [Concomitant]
     Active Substance: ESTROGENS, CONJUGATED
     Indication: HYSTERECTOMY
     Dosage: ONGOING: YES
     Route: 065
  11. OCREVUS [Suspect]
     Active Substance: OCRELIZUMAB
     Route: 042
     Dates: start: 201810
  12. OCREVUS [Suspect]
     Active Substance: OCRELIZUMAB
     Route: 042
     Dates: start: 20190923

REACTIONS (13)
  - Multiple sclerosis relapse [Not Recovered/Not Resolved]
  - Headache [Recovered/Resolved]
  - Migraine [Recovered/Resolved]
  - Eczema [Recovered/Resolved]
  - Vomiting projectile [Recovered/Resolved]
  - Respiratory tract infection [Recovered/Resolved]
  - Herpes zoster [Recovered/Resolved]
  - Herpes zoster [Recovered/Resolved]
  - Vomiting [Recovered/Resolved]
  - Respiratory disorder [Recovered/Resolved]
  - Herpes zoster [Recovered/Resolved]
  - Weight decreased [Recovered/Resolved]
  - Respiratory tract infection [Recovered/Resolved]

NARRATIVE: CASE EVENT DATE: 20180319
